FAERS Safety Report 4689025-9 (Version None)
Quarter: 2005Q2

REPORT INFORMATION
  Report Type: 
  Country: None (occurrence: None)
  Receive Date: 20050613
  Receipt Date: 20050602
  Transmission Date: 20051028
  Serious: Yes (Other)
  Sender: FDA-Public Use
  Company Number: SE-BRISTOL-MYERS SQUIBB COMPANY-12992186

PATIENT
  Age: 52 Year
  Sex: Female

DRUGS (3)
  1. BUSPIRONE HCL [Suspect]
  2. PAROXETINE HCL [Interacting]
  3. PAPAVERINE [Interacting]

REACTIONS (2)
  - DRUG INTERACTION [None]
  - SEROTONIN SYNDROME [None]
